FAERS Safety Report 24957762 (Version 2)
Quarter: 2025Q2

REPORT INFORMATION
  Report Type: Spontaneous
  Country: US (occurrence: US)
  Receive Date: 20250212
  Receipt Date: 20250404
  Transmission Date: 20250716
  Serious: Yes (Hospitalization)
  Sender: ENDO
  Company Number: US-ENDO USA, INC.-2025-000274

PATIENT
  Age: 90 Year
  Sex: Male

DRUGS (2)
  1. CALCITONIN SALMON [Suspect]
     Active Substance: CALCITONIN SALMON
     Indication: Spinal fracture
     Route: 045
     Dates: start: 202411
  2. CALCITONIN SALMON [Suspect]
     Active Substance: CALCITONIN SALMON
     Route: 045

REACTIONS (6)
  - Thoracic vertebral fracture [Unknown]
  - Lumbar vertebral fracture [Unknown]
  - Drug effective for unapproved indication [Unknown]
  - Product dose omission issue [Not Recovered/Not Resolved]
  - Off label use [Unknown]
  - Device breakage [None]

NARRATIVE: CASE EVENT DATE: 20241101
